FAERS Safety Report 11239836 (Version 3)
Quarter: 2015Q3

REPORT INFORMATION
  Report Type: Spontaneous
  Country: US (occurrence: US)
  Receive Date: 20150706
  Receipt Date: 20150910
  Transmission Date: 20151125
  Serious: No
  Sender: FDA-Public Use
  Company Number: US-PFIZER INC-2015217757

PATIENT
  Age: 68 Year
  Sex: Female

DRUGS (8)
  1. ADVIL [Suspect]
     Active Substance: IBUPROFEN
     Indication: HEADACHE
  2. ADVIL [Suspect]
     Active Substance: IBUPROFEN
     Indication: BACK PAIN
  3. ASPIRIN. [Concomitant]
     Active Substance: ASPIRIN
     Indication: STENT PLACEMENT
     Dosage: 325 MG, 1X/DAY
  4. ADVIL [Suspect]
     Active Substance: IBUPROFEN
     Indication: ARTHRALGIA
  5. ASPIRIN. [Concomitant]
     Active Substance: ASPIRIN
     Indication: PAIN
  6. ASPIRIN. [Concomitant]
     Active Substance: ASPIRIN
     Indication: HEADACHE
  7. ADVIL [Suspect]
     Active Substance: IBUPROFEN
     Indication: PAIN IN EXTREMITY
     Dosage: 200 MG
     Route: 048
  8. ALEVE [Suspect]
     Active Substance: NAPROXEN SODIUM
     Dosage: UNK

REACTIONS (3)
  - Back pain [Unknown]
  - Poor quality drug administered [Unknown]
  - Product commingling [Unknown]
